FAERS Safety Report 8300448-9 (Version None)
Quarter: 2012Q2

REPORT INFORMATION
  Report Type: 
  Country: None (occurrence: None)
  Receive Date: 20120417
  Receipt Date: 20120402
  Transmission Date: 20120825
  Serious: Yes (Other)
  Sender: FDA-Public Use
  Company Number: 2012P1011765

PATIENT
  Sex: Female

DRUGS (1)
  1. LUSTRA AF [Suspect]

REACTIONS (2)
  - POOR QUALITY DRUG ADMINISTERED [None]
  - PRODUCT CONTAMINATION PHYSICAL [None]
